FAERS Safety Report 8988815 (Version 1)
Quarter: 2012Q4

REPORT INFORMATION
  Report Type: 
  Country: FR (occurrence: FR)
  Receive Date: 20121228
  Receipt Date: 20121228
  Transmission Date: 20130627
  Serious: Yes (Life-Threatening, Hospitalization, Other)
  Sender: FDA-Public Use
  Company Number: PHHY2012FR120587

PATIENT
  Age: 52 Year
  Sex: Female

DRUGS (9)
  1. NEORAL [Suspect]
     Dosage: 75 mg, BID
     Route: 048
     Dates: start: 1992
  2. NEORAL [Suspect]
     Dosage: 25 mg, QD
     Route: 048
     Dates: start: 20121102, end: 20121102
  3. CELLCEPT [Suspect]
     Dosage: 1.5 mg, BID
     Dates: start: 1992, end: 20121102
  4. SOLUPRED [Suspect]
     Dosage: 5 mg, QD
     Route: 048
     Dates: start: 1992, end: 20121102
  5. SOLUMEDROL(METHYLPREDNISOLONE SODIUM SUCCINATE) INFUSION [Suspect]
     Dosage: 50 mg, QD
     Dates: start: 20121102
  6. ARTEX [Suspect]
     Dosage: 5 mg, QD
     Route: 048
     Dates: start: 1992, end: 20121102
  7. LEVOTHYROX [Concomitant]
     Dosage: 25 ug, QD
  8. SPECIAFOLDINE [Concomitant]
     Dosage: 2 DF, QD
  9. ZYLORIC [Concomitant]
     Dosage: 100 mg, QD
     Dates: start: 20121024

REACTIONS (13)
  - Lymphoproliferative disorder [Not Recovered/Not Resolved]
  - Lymphadenopathy [Not Recovered/Not Resolved]
  - Jaundice [Unknown]
  - Pyrexia [Unknown]
  - Aplastic anaemia [Unknown]
  - Hyperbilirubinaemia [Unknown]
  - Cholestasis [Unknown]
  - Hodgkin^s disease [Not Recovered/Not Resolved]
  - Nutritional condition abnormal [Unknown]
  - Renal impairment [Unknown]
  - General physical health deterioration [Unknown]
  - Asthenia [Unknown]
  - Abdominal discomfort [Unknown]
